FAERS Safety Report 25937108 (Version 1)
Quarter: 2025Q4

REPORT INFORMATION
  Report Type: Spontaneous
  Country: US (occurrence: None)
  Receive Date: 20251017
  Receipt Date: 20251017
  Transmission Date: 20260117
  Serious: No
  Sender: INCYTE
  Company Number: US-INCYTE CORPORATION-2025IN011157

PATIENT

DRUGS (1)
  1. JAKAFI [Suspect]
     Active Substance: RUXOLITINIB
     Indication: Myelofibrosis
     Dosage: 15 MILLIGRAM, BID (TAKE 1 TABLET BY MOUTH IN THE MORNING AND ONE-HALF TABLET IN EVENING)

REACTIONS (2)
  - Ill-defined disorder [Unknown]
  - Wrong technique in product usage process [Unknown]
